FAERS Safety Report 21649811 (Version 1)
Quarter: 2022Q4

REPORT INFORMATION
  Report Type: Spontaneous
  Country: ES (occurrence: ES)
  Receive Date: 20221128
  Receipt Date: 20221128
  Transmission Date: 20230113
  Serious: Yes (Other)
  Sender: FDA-Public Use
  Company Number: None

PATIENT
  Age: 45 Year
  Sex: Male
  Weight: 162 kg

DRUGS (3)
  1. NAPROXEN [Suspect]
     Active Substance: NAPROXEN
     Indication: Back pain
     Dosage: NAPROXEN (2002A), DURATION :   368 DAYS
     Route: 065
     Dates: start: 20210730, end: 20220801
  2. DIAZEPAM [Suspect]
     Active Substance: DIAZEPAM
     Indication: Muscle relaxant therapy
     Dosage: 5 MILLIGRAM DAILY; 2.5 MG, TWICE A DAY , 40 TABLETS, STRENGTH : 2.5 MG, THERAPY END DATE : NASK
     Route: 065
     Dates: start: 20210730
  3. NOLOTIL [Concomitant]
     Indication: Back pain
     Dates: start: 20210730

REACTIONS (1)
  - Upper gastrointestinal haemorrhage [Recovering/Resolving]

NARRATIVE: CASE EVENT DATE: 20210730
